FAERS Safety Report 25989557 (Version 2)
Quarter: 2025Q4

REPORT INFORMATION
  Report Type: Spontaneous
  Country: US (occurrence: US)
  Receive Date: 20251103
  Receipt Date: 20251117
  Transmission Date: 20260118
  Serious: Yes (Life-Threatening, Hospitalization)
  Sender: TEVA
  Company Number: US-TEVA-VS-3387340

PATIENT
  Age: 20 Year
  Sex: Male

DRUGS (3)
  1. EPINEPHRINE [Suspect]
     Active Substance: EPINEPHRINE
     Indication: Hypotension
     Route: 065
  2. BASILIXIMAB [Suspect]
     Active Substance: BASILIXIMAB
     Indication: Prophylaxis against transplant rejection
     Dosage: RECEIVED 2 DOSES
     Route: 065
  3. DEVICE [Suspect]
     Active Substance: DEVICE

REACTIONS (11)
  - Acute respiratory distress syndrome [Recovering/Resolving]
  - Drug ineffective [Unknown]
  - Hyperkalaemia [Unknown]
  - Histoplasmosis [Unknown]
  - Aspergillus infection [Unknown]
  - Pulseless electrical activity [Recovering/Resolving]
  - Pneumonia fungal [Unknown]
  - Cardiac arrest [Recovering/Resolving]
  - Abdominal compartment syndrome [Unknown]
  - Hypovolaemic shock [Unknown]
  - Hypotension [Unknown]
